FAERS Safety Report 15310015 (Version 1)
Quarter: 2018Q3

REPORT INFORMATION
  Report Type: Spontaneous
  Country: US (occurrence: US)
  Receive Date: 20180823
  Receipt Date: 20180823
  Transmission Date: 20181010
  Serious: No
  Sender: FDA-Public Use
  Company Number: US-BAYER-2018-158296

PATIENT
  Age: 66 Year
  Sex: Male
  Weight: 63.99 kg

DRUGS (2)
  1. DULCOLAX (BISACODYL) [Concomitant]
     Active Substance: BISACODYL
  2. MIRALAX [Suspect]
     Active Substance: POLYETHYLENE GLYCOL 3350
     Indication: COLONOSCOPY
     Dosage: 8.3 OUNCES
     Route: 048

REACTIONS (3)
  - Product use in unapproved indication [Unknown]
  - Off label use [Unknown]
  - Expired product administered [Unknown]
